FAERS Safety Report 15271209 (Version 1)
Quarter: 2018Q3

REPORT INFORMATION
  Report Type: Spontaneous
  Country: GB (occurrence: GB)
  Receive Date: 20180813
  Receipt Date: 20180813
  Transmission Date: 20181010
  Serious: Yes (Other)
  Sender: FDA-Public Use
  Company Number: GB-JNJFOC-20180807619

PATIENT
  Age: 53 Year
  Sex: Male
  Weight: 110 kg

DRUGS (6)
  1. RILPIVIRINE [Concomitant]
     Active Substance: RILPIVIRINE
     Route: 065
  2. PREZISTA [Suspect]
     Active Substance: DARUNAVIR ETHANOLATE
     Indication: HIV INFECTION
     Route: 048
     Dates: start: 201601
  3. REZOLSTA [Suspect]
     Active Substance: COBICISTAT\DARUNAVIR ETHANOLATE
     Indication: HIV INFECTION
     Dosage: 800 MG/150 MG
     Route: 048
     Dates: start: 201609
  4. NORVIR [Suspect]
     Active Substance: RITONAVIR
     Indication: HIV INFECTION
     Route: 048
     Dates: start: 201601
  5. MARAVIROC [Concomitant]
     Active Substance: MARAVIROC
     Route: 065
  6. DOLUTEGRAVIR [Concomitant]
     Active Substance: DOLUTEGRAVIR
     Route: 065

REACTIONS (24)
  - Skin striae [Unknown]
  - Increased tendency to bruise [Unknown]
  - Areflexia [Unknown]
  - Cushingoid [Recovering/Resolving]
  - Anxiety [Unknown]
  - Myalgia [Unknown]
  - Aspiration [Unknown]
  - Influenza [Unknown]
  - Central obesity [Unknown]
  - Depressed mood [Unknown]
  - Mood swings [Unknown]
  - Loss of libido [Unknown]
  - Back pain [Unknown]
  - Urine output decreased [Unknown]
  - Irritability [Unknown]
  - Skin atrophy [Unknown]
  - Keloid scar [Recovered/Resolved with Sequelae]
  - Infection susceptibility increased [Unknown]
  - Muscular weakness [Unknown]
  - Swelling face [Unknown]
  - Hypertension [Unknown]
  - Thirst [Unknown]
  - Anal incontinence [Recovering/Resolving]
  - Sleep disorder [Unknown]

NARRATIVE: CASE EVENT DATE: 201603
